FAERS Safety Report 4735079-0 (Version None)
Quarter: 2005Q3

REPORT INFORMATION
  Report Type: 
  Country: None (occurrence: None)
  Receive Date: 20050804
  Receipt Date: 20050505
  Transmission Date: 20060218
  Serious: Yes (Hospitalization, Other)
  Sender: FDA-Public Use
  Company Number: US-MERCK-0505USA00773

PATIENT
  Age: 69 Year
  Sex: Male
  Weight: 107 kg

DRUGS (9)
  1. VIOXX [Suspect]
     Indication: JOINT SWELLING
     Route: 048
     Dates: start: 20030213, end: 20030101
  2. VIOXX [Suspect]
     Route: 048
     Dates: start: 20040324, end: 20040101
  3. ACCUPRIL [Concomitant]
     Route: 065
     Dates: start: 19900101
  4. ALEXIN (CEPHALEXIN) [Concomitant]
     Route: 065
  5. LASIX [Concomitant]
     Route: 065
  6. GLUCOTROL XL [Concomitant]
     Route: 065
  7. HYDROCODONE BITARTRATE + ACETAMINOPHEN [Concomitant]
     Route: 065
  8. LIPITOR [Concomitant]
     Route: 065
  9. ASPIRIN [Concomitant]
     Route: 065
     Dates: start: 19900101

REACTIONS (4)
  - CEREBROVASCULAR ACCIDENT [None]
  - DEAFNESS UNILATERAL [None]
  - JOINT SWELLING [None]
  - KNEE ARTHROPLASTY [None]
